FAERS Safety Report 7205684-0 (Version None)
Quarter: 2010Q4

REPORT INFORMATION
  Report Type: 
  Country: None (occurrence: None)
  Receive Date: 20101231
  Receipt Date: 20101228
  Transmission Date: 20110411
  Serious: Yes (Other)
  Sender: FDA-Public Use
  Company Number: AT-PFIZER INC-2010181634

PATIENT
  Age: 28 Year
  Sex: Male

DRUGS (8)
  1. CELEBREX [Suspect]
  2. THALIDOMIDE [Concomitant]
  3. LIPSIN [Concomitant]
  4. KEPPRA [Concomitant]
  5. TEGRETOL [Concomitant]
  6. FRISIUM [Concomitant]
  7. LOVENOX [Concomitant]
     Indication: THROMBOSIS PROPHYLAXIS
  8. CHINESE TEA [Concomitant]
     Indication: BRAIN NEOPLASM

REACTIONS (2)
  - BRAIN NEOPLASM [None]
  - BRAIN OEDEMA [None]
